FAERS Safety Report 18969835 (Version 2)
Quarter: 2021Q3

REPORT INFORMATION
  Report Type: Other
  Country: AU (occurrence: AU)
  Receive Date: 20210304
  Receipt Date: 20210714
  Transmission Date: 20211014
  Serious: No
  Sender: FDA-Public Use
  Company Number: AU-TOLMAR, INC.-21AU025572

PATIENT
  Age: 72 Year
  Sex: Male

DRUGS (1)
  1. ELIGARD [Suspect]
     Active Substance: LEUPROLIDE ACETATE
     Indication: PROSTATE CANCER
     Dosage: 22.5 MG, Q 3 MONTH
     Route: 058

REACTIONS (2)
  - Urinary tract infection [Unknown]
  - Incontinence [Unknown]

NARRATIVE: CASE EVENT DATE: 20210121
